FAERS Safety Report 18791236 (Version 1)
Quarter: 2021Q1

REPORT INFORMATION
  Report Type: Report from Study
  Country: US (occurrence: US)
  Receive Date: 20210126
  Receipt Date: 20210126
  Transmission Date: 20210419
  Serious: Yes (Other)
  Sender: FDA-Public Use
  Company Number: US-TAKEDA-2021TUS000969

PATIENT
  Sex: Male

DRUGS (1)
  1. GAMMAGARD LIQUID [Suspect]
     Active Substance: HUMAN IMMUNOGLOBULIN G
     Indication: SECONDARY IMMUNODEFICIENCY
     Route: 065

REACTIONS (7)
  - Cardiac arrest [Unknown]
  - Depression [Unknown]
  - Skin infection [Unknown]
  - Infusion related reaction [Unknown]
  - Anxiety [Unknown]
  - Mental disorder [Unknown]
  - Overdose [Unknown]
